FAERS Safety Report 4402218-0 (Version None)
Quarter: 2004Q3

REPORT INFORMATION
  Report Type: 
  Country: None (occurrence: None)
  Receive Date: 20040720
  Receipt Date: 20040712
  Transmission Date: 20050211
  Serious: Yes (Hospitalization)
  Sender: FDA-Public Use
  Company Number: 200415230US

PATIENT
  Age: 59 Year
  Sex: Male

DRUGS (7)
  1. RILUTEK [Suspect]
     Route: 048
     Dates: start: 20040705, end: 20040706
  2. PLAVIX [Concomitant]
     Dosage: DOSE: UNK
  3. AGGRENOX [Concomitant]
     Dosage: DOSE: UNK
  4. ZETIA                                   /USA/ [Concomitant]
     Dosage: DOSE: UNK
  5. LIPITOR [Concomitant]
     Dosage: DOSE: UNK
  6. LISINOPRIL [Concomitant]
     Dosage: DOSE: UNK
  7. LOPRESSOR [Concomitant]
     Dosage: DOSE: UNK

REACTIONS (3)
  - PAIN IN EXTREMITY [None]
  - PYREXIA [None]
  - WHITE BLOOD CELL COUNT DECREASED [None]
